FAERS Safety Report 17403050 (Version 1)
Quarter: 2020Q1

REPORT INFORMATION
  Report Type: Report from Study
  Country: TW (occurrence: TW)
  Receive Date: 20200211
  Receipt Date: 20200211
  Transmission Date: 20200409
  Serious: Yes (Death, Hospitalization)
  Sender: FDA-Public Use
  Company Number: TW-ASTRAZENECA-2020SE19413

PATIENT
  Age: 81 Year
  Sex: Female

DRUGS (1)
  1. FASLODEX [Suspect]
     Active Substance: FULVESTRANT
     Indication: BREAST CANCER
     Dosage: 500 MG AS TWO 5 ML INJECTIONS, ONE IN EACH BUTTOCK, ON DAYS 1, 15, 29 AND ONCE MONTHLY THEREAFTER
     Route: 030
     Dates: start: 20190826, end: 20200102

REACTIONS (3)
  - Ascites [Unknown]
  - Oedema [Unknown]
  - Death [Fatal]

NARRATIVE: CASE EVENT DATE: 20200121
